FAERS Safety Report 10422357 (Version 2)
Quarter: 2014Q4

REPORT INFORMATION
  Report Type: Spontaneous
  Country: DK (occurrence: DK)
  Receive Date: 20140901
  Receipt Date: 20141015
  Transmission Date: 20150528
  Serious: Yes (Hospitalization)
  Sender: FDA-Public Use
  Company Number: DK-GALDERMA-DK14003259

PATIENT
  Age: 41 Year
  Sex: Female

DRUGS (1)
  1. MIRVASO [Suspect]
     Active Substance: BRIMONIDINE TARTRATE
     Indication: ERYTHEMA
     Dosage: 0.33%
     Route: 061
     Dates: start: 20140613, end: 20140827

REACTIONS (4)
  - Skin warm [Recovered/Resolved]
  - Paraesthesia [Recovered/Resolved]
  - Erythema [Recovered/Resolved]
  - Paraesthesia [Not Recovered/Not Resolved]

NARRATIVE: CASE EVENT DATE: 20140626
